FAERS Safety Report 15036427 (Version 2)
Quarter: 2018Q3

REPORT INFORMATION
  Report Type: Report from Study
  Country: US (occurrence: US)
  Receive Date: 20180620
  Receipt Date: 20180830
  Transmission Date: 20181010
  Serious: Yes (Other)
  Sender: FDA-Public Use
  Company Number: US-BAYER-2018-035476

PATIENT
  Age: 70 Year
  Sex: Male

DRUGS (2)
  1. STIVARGA [Suspect]
     Active Substance: REGORAFENIB
     Indication: HEPATOCELLULAR CARCINOMA
     Dosage: 80 MG, DAILY 3 WEEKS ON 1 WEEK OFF
     Route: 048
     Dates: start: 20180213, end: 20180227
  2. STIVARGA [Suspect]
     Active Substance: REGORAFENIB
     Indication: HEPATOCELLULAR CARCINOMA
     Dosage: 120 MG, DAILY 3 WEEKS ON 1 WEEK OFF
     Route: 048
     Dates: start: 20180228

REACTIONS (18)
  - Tumour marker decreased [Not Recovered/Not Resolved]
  - Pain in extremity [None]
  - Off label use [None]
  - Incorrect dosage administered [None]
  - Tumour marker increased [None]
  - Hepatocellular carcinoma [None]
  - Renal function test abnormal [None]
  - Nocturia [None]
  - Muscle spasms [Not Recovered/Not Resolved]
  - Tumour marker decreased [None]
  - Weight decreased [None]
  - Dysphonia [Not Recovered/Not Resolved]
  - Glossodynia [Not Recovered/Not Resolved]
  - Diverticulitis [Recovered/Resolved]
  - Decreased appetite [Not Recovered/Not Resolved]
  - Dysphonia [Not Recovered/Not Resolved]
  - Insomnia [None]
  - Fatigue [Not Recovered/Not Resolved]

NARRATIVE: CASE EVENT DATE: 201802
